FAERS Safety Report 10539933 (Version 5)
Quarter: 2015Q1

REPORT INFORMATION
  Report Type: Spontaneous
  Country: JP (occurrence: JP)
  Receive Date: 20141024
  Receipt Date: 20150122
  Transmission Date: 20150720
  Serious: Yes (Life-Threatening, Hospitalization)
  Sender: FDA-Public Use
  Company Number: JP-MERCK-1410JPN011609

PATIENT
  Age: 79 Year
  Sex: Male

DRUGS (5)
  1. GLACTIV [Suspect]
     Active Substance: SITAGLIPTIN
     Indication: TYPE 2 DIABETES MELLITUS
     Dosage: 50 MG, DAILY DOSE
     Route: 048
     Dates: start: 20140613, end: 20140624
  2. AMARYL [Concomitant]
     Active Substance: GLIMEPIRIDE
     Dosage: 0.5 MG, ONCE A DAY
     Dates: start: 20140717, end: 20140728
  3. ADALAT [Concomitant]
     Active Substance: NIFEDIPINE
     Dosage: UNK
     Dates: end: 2014
  4. STARSIS [Concomitant]
     Active Substance: NATEGLINIDE
     Dosage: 90 MG, 3 TIMES A DAY
     Dates: start: 20140624, end: 20140716
  5. STARSIS [Concomitant]
     Active Substance: NATEGLINIDE
     Dosage: 90 MG, 3 TIMES A DAY
     Dates: start: 201403, end: 20140612

REACTIONS (2)
  - Interstitial lung disease [Recovered/Resolved]
  - Musculoskeletal stiffness [Unknown]

NARRATIVE: CASE EVENT DATE: 20140617
